FAERS Safety Report 7823621-2 (Version None)
Quarter: 2011Q4

REPORT INFORMATION
  Report Type: 
  Country: None (occurrence: None)
  Receive Date: 20111019
  Receipt Date: 20111017
  Transmission Date: 20120403
  Serious: Yes (Other)
  Sender: FDA-Public Use
  Company Number: US-PFIZER INC-2011249252

PATIENT
  Sex: Female
  Weight: 79.365 kg

DRUGS (3)
  1. LYRICA [Suspect]
     Indication: NEUROPATHY PERIPHERAL
     Dosage: 75 MG, 2X/DAY
     Route: 048
  2. CELEBREX [Suspect]
     Indication: ARTHRITIS
     Dosage: 100 MG, 2X/DAY
     Route: 048
  3. NEURONTIN [Suspect]
     Dosage: UNK

REACTIONS (1)
  - COGNITIVE DISORDER [None]
